FAERS Safety Report 17941090 (Version 3)
Quarter: 2020Q3

REPORT INFORMATION
  Report Type: Report from Study
  Country: CA (occurrence: CA)
  Receive Date: 20200624
  Receipt Date: 20200722
  Transmission Date: 20201103
  Serious: Yes (Other)
  Sender: FDA-Public Use
  Company Number: CA-BAUSCH-BL-2020-016648

PATIENT
  Age: 65 Year
  Sex: Male

DRUGS (2)
  1. SILIQ [Suspect]
     Active Substance: BRODALUMAB
     Dosage: STRENGTH: (210MG/1.5ML)
     Route: 058
     Dates: start: 2020
  2. SILIQ [Suspect]
     Active Substance: BRODALUMAB
     Indication: PSORIASIS
     Dosage: STRENGTH: (210MG/1.5ML) (AT WEEK 0, 1 AND 2)
     Route: 058
     Dates: start: 20200528, end: 202006

REACTIONS (10)
  - Neck pain [Recovering/Resolving]
  - Fatigue [Not Recovered/Not Resolved]
  - Hot flush [Recovering/Resolving]
  - Headache [Not Recovered/Not Resolved]
  - Blood pressure increased [Unknown]
  - Malaise [Recovering/Resolving]
  - Dizziness [Recovering/Resolving]
  - Back pain [Recovering/Resolving]
  - Presyncope [Recovering/Resolving]
  - Asthenia [Not Recovered/Not Resolved]

NARRATIVE: CASE EVENT DATE: 2020
